FAERS Safety Report 14698153 (Version 1)
Quarter: 2018Q1

REPORT INFORMATION
  Report Type: Spontaneous
  Country: DE (occurrence: DE)
  Receive Date: 20180330
  Receipt Date: 20180330
  Transmission Date: 20180509
  Serious: Yes (Other)
  Sender: FDA-Public Use
  Company Number: DE-TEVA-2018-DE-876713

PATIENT
  Sex: Female

DRUGS (3)
  1. CAPECITABINE. [Suspect]
     Active Substance: CAPECITABINE
     Indication: BREAST CANCER METASTATIC
     Route: 048
  2. IBRANCE [Suspect]
     Active Substance: PALBOCICLIB
     Indication: PRODUCT USED FOR UNKNOWN INDICATION
     Route: 065
  3. LETROZOL [Concomitant]
     Active Substance: LETROZOLE
     Indication: PRODUCT USED FOR UNKNOWN INDICATION
     Route: 065

REACTIONS (18)
  - Hypoaesthesia [Unknown]
  - Stomatitis [Unknown]
  - Feeding disorder [Unknown]
  - Polyneuropathy [Unknown]
  - Neutrophil count decreased [Unknown]
  - Decreased appetite [Not Recovered/Not Resolved]
  - Dizziness [Unknown]
  - Dysphagia [Unknown]
  - White blood cell count decreased [Unknown]
  - Rhinorrhoea [Recovered/Resolved]
  - Platelet count decreased [Unknown]
  - Oropharyngeal pain [Unknown]
  - Overdose [Unknown]
  - Skin disorder [Unknown]
  - Urinary tract infection [Unknown]
  - Dyspnoea [Unknown]
  - Aphthous ulcer [Unknown]
  - Headache [Unknown]
